FAERS Safety Report 8934294 (Version 1)
Quarter: 2012Q4

REPORT INFORMATION
  Report Type: 
  Country: US (occurrence: US)
  Receive Date: 20121129
  Receipt Date: 20121129
  Transmission Date: 20130627
  Serious: No
  Sender: FDA-Public Use
  Company Number: US-PFIZER INC-2012297485

PATIENT
  Age: 56 Year
  Sex: Female
  Weight: 78.46 kg

DRUGS (5)
  1. PREMARIN [Suspect]
     Indication: HORMONE REPLACEMENT THERAPY
     Dosage: 1.25 mg, daily
     Dates: start: 1981, end: 2012
  2. PREMARIN [Suspect]
     Dosage: 1.25 mg after every 2 days
     Dates: start: 201209
  3. ESTRIOL\PROGESTERONE [Suspect]
     Dosage: UNK
     Dates: start: 201204, end: 201209
  4. NORVASC [Concomitant]
     Indication: BLOOD PRESSURE HIGH
     Dosage: 5 mg, daily
  5. LASIX [Concomitant]
     Indication: BLOOD PRESSURE HIGH
     Dosage: 20 mg, 2x/day

REACTIONS (4)
  - Rash [Unknown]
  - Headache [Unknown]
  - Furuncle [Recovered/Resolved]
  - Drug administration error [Unknown]
